FAERS Safety Report 20133478 (Version 1)
Quarter: 2021Q4

REPORT INFORMATION
  Report Type: Spontaneous
  Country: NP (occurrence: NP)
  Receive Date: 20211201
  Receipt Date: 20211201
  Transmission Date: 20220303
  Serious: Yes (Death, Hospitalization, Other)
  Sender: FDA-Public Use
  Company Number: NP-AMGEN-NPLSP2021187500

PATIENT
  Age: 2 Year
  Sex: Male

DRUGS (9)
  1. FILGRASTIM [Suspect]
     Active Substance: FILGRASTIM
     Indication: Neutropenia
     Dosage: 50 MICROGRAM DAILY
     Route: 058
  2. FILGRASTIM [Suspect]
     Active Substance: FILGRASTIM
     Indication: Off label use
  3. VINCRISTINE [Concomitant]
     Active Substance: VINCRISTINE
     Indication: Acute lymphocytic leukaemia
     Dosage: 1.4 MILLIGRAM/SQ. METER ONCE A WEEK (D1,8)
     Route: 042
  4. PREDNISOLONE [Concomitant]
     Active Substance: PREDNISOLONE
     Indication: Acute lymphocytic leukaemia
     Dosage: 40 MILLIGRAM/SQ. METER ORALLY, DAILY (D1-8)
     Route: 048
  5. ASPARAGINASE [Concomitant]
     Active Substance: ASPARAGINASE
     Indication: Acute lymphocytic leukaemia
     Dosage: 6000 UNIT PER METER SQARE/DOSE D2, A TOTAL OF 3 DOSES
     Route: 042
  6. METHOTREXATE [Concomitant]
     Active Substance: METHOTREXATE
     Indication: Acute lymphocytic leukaemia
     Dosage: 8 MILLIGRAM /DOSE INTRATHECALLY ONCE A WEEK (D1,8)
     Route: 065
  7. DAUNORUBICIN [Concomitant]
     Active Substance: DAUNORUBICIN
     Indication: Acute lymphocytic leukaemia
     Dosage: 30 MILLIGRAM/SQ. METER (ON DAY 8)
     Route: 042
  8. VANCOMYCIN [Concomitant]
     Active Substance: VANCOMYCIN
     Indication: Pseudomonas infection
     Dosage: UNK
     Route: 042
  9. GENTAMICIN [Concomitant]
     Active Substance: GENTAMICIN
     Indication: Pseudomonas infection
     Dosage: UNK
     Route: 042

REACTIONS (2)
  - Pneumonia [Unknown]
  - Sepsis [Fatal]
